FAERS Safety Report 8738196 (Version 3)
Quarter: 2012Q4

REPORT INFORMATION
  Report Type: 
  Country: US (occurrence: US)
  Receive Date: 20120823
  Receipt Date: 20121002
  Transmission Date: 20130627
  Serious: No
  Sender: FDA-Public Use
  Company Number: US-PFIZER INC-2012204000

PATIENT
  Age: 83 Year
  Sex: Female
  Weight: 72.56 kg

DRUGS (5)
  1. TIKOSYN [Suspect]
     Indication: HEART RATE IRREGULAR
     Dosage: 125 ug, UNK
  2. TIKOSYN [Interacting]
     Indication: VENTRICULAR EXTRASYSTOLES
     Dosage: UNK
     Dates: end: 201209
  3. ATIVAN [Interacting]
     Indication: ANXIETY
     Dosage: 5 mg, daily
  4. LASIX [Interacting]
  5. ZOCOR [Concomitant]
     Indication: BLOOD CHOLESTEROL INCREASED
     Dosage: UNK

REACTIONS (3)
  - Drug interaction [Unknown]
  - Tremor [Unknown]
  - Anxiety [Unknown]
